FAERS Safety Report 5449487-6 (Version None)
Quarter: 2007Q3

REPORT INFORMATION
  Report Type: 
  Country: None (occurrence: None)
  Receive Date: 20070907
  Receipt Date: 20070903
  Transmission Date: 20080115
  Serious: Yes (Death)
  Sender: FDA-Public Use
  Company Number: 2007-163853-NL

PATIENT
  Age: 76 Year
  Sex: Male

DRUGS (2)
  1. VECURONIUM BROMIDE [Suspect]
     Indication: MUSCLE RELAXANT THERAPY
     Dosage: 4 MG
     Route: 042
     Dates: start: 20070830, end: 20070830
  2. KETAMINE HYDROCHLORIDE [Concomitant]

REACTIONS (2)
  - CARDIAC FAILURE [None]
  - TRISMUS [None]
